FAERS Safety Report 14949499 (Version 1)
Quarter: 2018Q2

REPORT INFORMATION
  Report Type: Spontaneous
  Country: US (occurrence: US)
  Receive Date: 20180529
  Receipt Date: 20180529
  Transmission Date: 20180711
  Serious: No
  Sender: FDA-Public Use
  Company Number: US-AMNEAL PHARMACEUTICALS-2018AMN00175

PATIENT
  Sex: Female
  Weight: 45.35 kg

DRUGS (1)
  1. OSELTAMIVIR PHOSPHATE. [Suspect]
     Active Substance: OSELTAMIVIR PHOSPHATE
     Indication: INFLUENZA
     Dosage: 1 CAPSULES, 2X/DAY TOOK ONLY ONE DOSE
     Dates: start: 20180221

REACTIONS (3)
  - Pruritus generalised [Recovering/Resolving]
  - Formication [Recovering/Resolving]
  - Rash generalised [Recovering/Resolving]
